FAERS Safety Report 9345510 (Version 1)
Quarter: 2013Q2

REPORT INFORMATION
  Report Type: Spontaneous
  Country: NZ (occurrence: NZ)
  Receive Date: 20130613
  Receipt Date: 20130613
  Transmission Date: 20140414
  Serious: Yes (Hospitalization)
  Sender: FDA-Public Use
  Company Number: NZ-JNJFOC-20130600678

PATIENT
  Age: 56 Year
  Sex: Male
  Weight: 90 kg

DRUGS (14)
  1. DOXORUBICIN HYDROCHLORIDE [Suspect]
     Indication: B-CELL LYMPHOMA
     Route: 042
  2. CYCLOPHOSPHAMIDE [Suspect]
     Indication: B-CELL LYMPHOMA
     Route: 065
  3. PREDNISONE [Suspect]
     Indication: B-CELL LYMPHOMA
     Route: 065
  4. RITUXIMAB [Suspect]
     Indication: B-CELL LYMPHOMA
     Route: 042
     Dates: start: 20121120
  5. VINCRISTINE SULFATE [Suspect]
     Indication: B-CELL LYMPHOMA
     Route: 065
  6. DOMPERIDONE [Concomitant]
     Indication: NAUSEA
     Route: 065
     Dates: start: 20121120
  7. PARACETAMOL [Concomitant]
     Indication: PRODUCT USED FOR UNKNOWN INDICATION
     Route: 065
     Dates: start: 20121120
  8. OMEPRAZOLE [Concomitant]
     Indication: PRODUCT USED FOR UNKNOWN INDICATION
     Route: 065
     Dates: start: 20121121
  9. NAPROXEN [Concomitant]
     Indication: BACK PAIN
     Route: 065
  10. CETIRIZINE HYDROCHLORIDE [Concomitant]
     Indication: SEASONAL ALLERGY
     Route: 065
  11. ALLOPURINOL [Concomitant]
     Indication: GOUT
     Route: 065
     Dates: start: 20121116
  12. ONDANSETRON [Concomitant]
     Indication: NAUSEA
     Route: 065
     Dates: start: 20121121
  13. PROMETHAZINE [Concomitant]
     Indication: NAUSEA
     Route: 042
     Dates: start: 20121120
  14. ZOPICLONE [Concomitant]
     Indication: INSOMNIA
     Route: 065

REACTIONS (3)
  - Febrile neutropenia [Recovered/Resolved]
  - Streptococcal sepsis [Unknown]
  - Oropharyngeal pain [Unknown]
